FAERS Safety Report 10272000 (Version 3)
Quarter: 2020Q1

REPORT INFORMATION
  Report Type: Spontaneous
  Country: IT (occurrence: IT)
  Receive Date: 20140702
  Receipt Date: 20200122
  Transmission Date: 20200409
  Serious: Yes (Death, Other)
  Sender: FDA-Public Use
  Company Number: PHHY2014IT079687

PATIENT
  Sex: Female

DRUGS (14)
  1. MIDAZOLAM HYDROCHLORIDE. [Suspect]
     Active Substance: MIDAZOLAM HYDROCHLORIDE
     Indication: STATUS EPILEPTICUS
     Dosage: 5 UG/KG/MIN
     Route: 065
  2. KETAMINE [Suspect]
     Active Substance: KETAMINE
     Indication: EPILEPSY
     Dosage: 2 MG/KG (OCCASIONAL BOLUSES)
     Route: 042
  3. KETAMINE [Suspect]
     Active Substance: KETAMINE
     Dosage: 1.44 MG/KG (1.44 MG/KG, UNK (INFUSION, PER HOUR)
     Route: 041
  4. KETAMINE [Suspect]
     Active Substance: KETAMINE
     Dosage: 60 ?G/KG/MIN
     Route: 065
  5. MIDAZOLAM HYDROCHLORIDE. [Suspect]
     Active Substance: MIDAZOLAM HYDROCHLORIDE
     Dosage: UNK (UP TO 20 MCG/KG/MIN)
     Route: 065
  6. CARBAMAZEPINE. [Suspect]
     Active Substance: CARBAMAZEPINE
     Indication: EPILEPSY
     Dosage: 35.5 MG/KG (35.5 MG/KG, DAILY)
     Route: 065
  7. KETAMINE [Suspect]
     Active Substance: KETAMINE
     Dosage: 24 MG/KG (3.6 MG/KG, UNK (INFUSION, PER HOUR)
     Route: 041
  8. PHENOBARBITAL. [Suspect]
     Active Substance: PHENOBARBITAL
     Indication: STATUS EPILEPTICUS
     Dosage: UNK
     Route: 065
  9. PHENYTOIN. [Suspect]
     Active Substance: PHENYTOIN
     Indication: STATUS EPILEPTICUS
     Dosage: UNK
     Route: 065
  10. LEVETIRACETAM. [Suspect]
     Active Substance: LEVETIRACETAM
     Dosage: UNK (UP TO 50 MG/KG/DAY)
     Route: 065
  11. KETAMINE [Suspect]
     Active Substance: KETAMINE
     Dosage: 10 UG/KG (CONTINUOUS INFUSION OF 10 MCG/KG/MIN)
     Route: 042
  12. LEVETIRACETAM. [Suspect]
     Active Substance: LEVETIRACETAM
     Indication: STATUS EPILEPTICUS
     Dosage: UNK
     Route: 065
  13. PROPOFOL. [Suspect]
     Active Substance: PROPOFOL
     Indication: STATUS EPILEPTICUS
     Dosage: 2 MG/KG
     Route: 065
  14. KETAMINE [Suspect]
     Active Substance: KETAMINE
     Dosage: 24 UG, UNK ((UP TO 24 MCG/KG/MIN)
     Route: 042

REACTIONS (5)
  - Drug ineffective [Fatal]
  - Death [Fatal]
  - Drug level increased [Unknown]
  - Status epilepticus [Unknown]
  - General physical health deterioration [Unknown]
